FAERS Safety Report 16089324 (Version 1)
Quarter: 2019Q1

REPORT INFORMATION
  Report Type: Spontaneous
  Country: US (occurrence: US)
  Receive Date: 20190319
  Receipt Date: 20190319
  Transmission Date: 20190418
  Serious: Yes (Other)
  Sender: FDA-Public Use
  Company Number: US-JNJFOC-20190317679

PATIENT
  Sex: Female

DRUGS (1)
  1. ORTHO NOVUM [Suspect]
     Active Substance: MESTRANOL\NORETHINDRONE
     Indication: POLYCYSTIC OVARIES
     Route: 048

REACTIONS (2)
  - Abdominal pain [Unknown]
  - Ovarian cyst ruptured [Unknown]
